FAERS Safety Report 12863106 (Version 1)
Quarter: 2016Q4

REPORT INFORMATION
  Report Type: Spontaneous
  Country: JP (occurrence: JP)
  Receive Date: 20161019
  Receipt Date: 20161019
  Transmission Date: 20170207
  Serious: Yes (Hospitalization)
  Sender: FDA-Public Use
  Company Number: JP-ELI_LILLY_AND_COMPANY-JP201610003856

PATIENT
  Age: 79 Year
  Sex: Female

DRUGS (5)
  1. AZILVA [Concomitant]
     Active Substance: AZILSARTAN KAMEDOXOMIL
  2. FORTEO [Suspect]
     Active Substance: TERIPARATIDE
     Indication: OSTEOPOROSIS
     Dosage: UNK
     Route: 058
     Dates: start: 20161008
  3. SAMSCA [Suspect]
     Active Substance: TOLVAPTAN
     Indication: PRODUCT USED FOR UNKNOWN INDICATION
     Dosage: UNK
     Route: 065
     Dates: start: 20160905
  4. LUSEFI [Suspect]
     Active Substance: LUSEOGLIFLOZIN
     Indication: PRODUCT USED FOR UNKNOWN INDICATION
     Dosage: UNK
     Route: 065
     Dates: start: 20161005, end: 20161012
  5. OLMETEC [Concomitant]
     Active Substance: OLMESARTAN MEDOXOMIL

REACTIONS (3)
  - Blood creatinine increased [Recovering/Resolving]
  - Blood sodium increased [Recovering/Resolving]
  - Blood uric acid increased [Recovering/Resolving]

NARRATIVE: CASE EVENT DATE: 20161012
